FAERS Safety Report 15501616 (Version 1)
Quarter: 2018Q4

REPORT INFORMATION
  Report Type: Spontaneous
  Country: US (occurrence: US)
  Receive Date: 20181015
  Receipt Date: 20181015
  Transmission Date: 20190205
  Serious: Yes (Other)
  Sender: FDA-Public Use
  Company Number: US-PRINSTON PHARMACEUTICAL INC.-2018PRN01473

PATIENT
  Sex: Male
  Weight: 69.39 kg

DRUGS (2)
  1. FUROSEMIDE. [Suspect]
     Active Substance: FUROSEMIDE
     Indication: PERIPHERAL SWELLING
     Dosage: 40 MG, 1X/DAY
     Route: 048
  2. UNSPECIFIED DRUGS [Concomitant]
     Active Substance: UNSPECIFIED INGREDIENT

REACTIONS (3)
  - Coeliac disease [Not Recovered/Not Resolved]
  - Weight decreased [Recovered/Resolved]
  - Haematochezia [Recovered/Resolved]
